FAERS Safety Report 7540604-0 (Version None)
Quarter: 2011Q2

REPORT INFORMATION
  Report Type: 
  Country: None (occurrence: None)
  Receive Date: 20110610
  Receipt Date: 20110606
  Transmission Date: 20111010
  Serious: Yes (Hospitalization, Other)
  Sender: FDA-Public Use
  Company Number: FR-PFIZER INC-2011111106

PATIENT
  Age: 35 Year
  Sex: Female

DRUGS (3)
  1. NEXIUM [Concomitant]
     Dosage: UNK
     Route: 048
     Dates: start: 20110101
  2. BUTAZOLIDIN [Suspect]
     Dosage: 200 MG, 3X/DAY
     Route: 048
     Dates: start: 20110405, end: 20110422
  3. SULFASALAZINE [Suspect]
     Indication: ANKYLOSING SPONDYLITIS
     Dosage: 1 G, 2X/DAY
     Route: 048
     Dates: start: 20110201, end: 20110422

REACTIONS (3)
  - ANAEMIA [None]
  - AGRANULOCYTOSIS [None]
  - HEADACHE [None]
